FAERS Safety Report 6135684-3 (Version None)
Quarter: 2009Q1

REPORT INFORMATION
  Report Type: 
  Country: None (occurrence: None)
  Receive Date: 20090327
  Receipt Date: 20090317
  Transmission Date: 20090719
  Serious: Yes (Hospitalization)
  Sender: FDA-Public Use
  Company Number: TR-ELI_LILLY_AND_COMPANY-TR200903006492

PATIENT
  Sex: Male

DRUGS (2)
  1. HUMULIN 70/30 [Suspect]
     Indication: DIABETES MELLITUS
     Dosage: 44 U, EACH MORNING
     Route: 058
     Dates: start: 20070101
  2. HUMULIN 70/30 [Suspect]
     Dosage: 24 U, EACH EVENING
     Route: 058
     Dates: start: 20070101

REACTIONS (3)
  - BLOOD GLUCOSE INCREASED [None]
  - DIARRHOEA [None]
  - WOUND [None]
